FAERS Safety Report 25639180 (Version 1)
Quarter: 2025Q3

REPORT INFORMATION
  Report Type: Spontaneous
  Country: US (occurrence: None)
  Receive Date: 20250802
  Receipt Date: 20250802
  Transmission Date: 20251021
  Serious: Yes (Hospitalization)
  Sender: FDA-CTU
  Company Number: None

PATIENT
  Age: 21 Month
  Sex: Male
  Weight: 13.9 kg

DRUGS (2)
  1. CYCLOPHOSPHAMIDE [Suspect]
     Active Substance: CYCLOPHOSPHAMIDE
     Dates: end: 20250716
  2. THIOTEPA [Suspect]
     Active Substance: THIOTEPA
     Dates: end: 20250713

REACTIONS (9)
  - Colitis [None]
  - Pyrexia [None]
  - Hypervolaemia [None]
  - Pallor [None]
  - Tachycardia [None]
  - Blood pressure decreased [None]
  - Abdominal distension [None]
  - Pleural effusion [None]
  - Pseudomonas test positive [None]

NARRATIVE: CASE EVENT DATE: 20250725
